FAERS Safety Report 23221506 (Version 1)
Quarter: 2023Q4

REPORT INFORMATION
  Report Type: Spontaneous
  Country: CN (occurrence: None)
  Receive Date: 20231123
  Receipt Date: 20231123
  Transmission Date: 20240110
  Serious: Yes (Life-Threatening, Hospitalization)
  Sender: FDA-Public Use
  Company Number: CN-ROCHE-3461778

PATIENT
  Sex: Female

DRUGS (5)
  1. GAZYVA [Suspect]
     Active Substance: OBINUTUZUMAB
     Indication: Non-Hodgkin^s lymphoma
     Dosage: PUMP INJECTION; INJECTION
     Route: 065
     Dates: start: 20230824, end: 20230824
  2. CYCLOPHOSPHAMIDE [Suspect]
     Active Substance: CYCLOPHOSPHAMIDE
     Indication: Non-Hodgkin^s lymphoma
     Route: 041
     Dates: start: 20230825, end: 20230825
  3. VINDESINE SULFATE [Suspect]
     Active Substance: VINDESINE SULFATE
     Indication: Non-Hodgkin^s lymphoma
     Route: 041
     Dates: start: 20230825, end: 20230825
  4. DOXORUBICIN HYDROCHLORIDE [Suspect]
     Active Substance: DOXORUBICIN HYDROCHLORIDE
     Indication: Non-Hodgkin^s lymphoma
     Route: 065
     Dates: start: 20230826, end: 20230826
  5. PREDNISOLONE [Concomitant]
     Active Substance: PREDNISOLONE
     Indication: Non-Hodgkin^s lymphoma

REACTIONS (1)
  - Myelosuppression [Recovering/Resolving]

NARRATIVE: CASE EVENT DATE: 20230913
